FAERS Safety Report 9432943 (Version 1)
Quarter: 2013Q3

REPORT INFORMATION
  Report Type: Spontaneous
  Country: US (occurrence: US)
  Receive Date: 20130731
  Receipt Date: 20130731
  Transmission Date: 20140515
  Serious: No
  Sender: FDA-Public Use
  Company Number: US-PFIZER INC-2013197620

PATIENT
  Sex: Male

DRUGS (1)
  1. VISTARIL [Suspect]
     Dosage: UNK, TAKE 1-2 CAPSULES AT BEDTIME

REACTIONS (1)
  - Excoriation [Unknown]
